FAERS Safety Report 5583056-2 (Version None)
Quarter: 2008Q1

REPORT INFORMATION
  Report Type: 
  Country: None (occurrence: None)
  Receive Date: 20080107
  Receipt Date: 20071228
  Transmission Date: 20080703
  Serious: Yes (Hospitalization)
  Sender: FDA-Public Use
  Company Number: B0495765A

PATIENT
  Age: 57 Year
  Sex: Male
  Weight: 64 kg

DRUGS (6)
  1. PAXIL [Suspect]
     Indication: DEPRESSION
     Route: 048
     Dates: start: 20060706
  2. AMOXAN [Concomitant]
     Indication: DEPRESSION
     Route: 048
     Dates: end: 20060706
  3. LORAZEPAM [Concomitant]
     Indication: DEPRESSION
     Route: 048
     Dates: start: 20060706
  4. RISPERDAL [Concomitant]
     Indication: DEPRESSION
     Route: 048
     Dates: start: 20060706, end: 20070919
  5. ABILIFY [Concomitant]
     Indication: DEPRESSION
     Route: 048
     Dates: start: 20070919, end: 20071128
  6. LULLAN [Concomitant]
     Indication: DEPRESSION
     Route: 048
     Dates: start: 20071128

REACTIONS (12)
  - AGITATION [None]
  - ANXIETY [None]
  - APATHY [None]
  - DEPRESSION [None]
  - DRUG WITHDRAWAL SYNDROME [None]
  - IRRITABILITY [None]
  - MALAISE [None]
  - MOOD ALTERED [None]
  - NAUSEA [None]
  - PANIC DISORDER [None]
  - RESTLESSNESS [None]
  - STOMACH DISCOMFORT [None]
